FAERS Safety Report 7440826-3 (Version None)
Quarter: 2011Q2

REPORT INFORMATION
  Report Type: 
  Country: None (occurrence: None)
  Receive Date: 20110427
  Receipt Date: 20110425
  Transmission Date: 20111010
  Serious: Yes (Death, Other)
  Sender: FDA-Public Use
  Company Number: US-AMGEN-USASP2010002310

PATIENT
  Sex: Female

DRUGS (1)
  1. NPLATE [Suspect]
     Indication: IDIOPATHIC THROMBOCYTOPENIC PURPURA
     Dosage: 4 A?G/KG, UNK
     Dates: start: 20100818, end: 20100917

REACTIONS (2)
  - LUNG CARCINOMA CELL TYPE UNSPECIFIED STAGE IV [None]
  - DRUG INEFFECTIVE [None]
